FAERS Safety Report 19431661 (Version 2)
Quarter: 2022Q3

REPORT INFORMATION
  Report Type: Spontaneous
  Country: US (occurrence: US)
  Receive Date: 20210617
  Receipt Date: 20220727
  Transmission Date: 20221026
  Serious: Yes (Hospitalization)
  Sender: FDA-Public Use
  Company Number: US-MYLANLABS-2021M1035245

PATIENT
  Age: 12 Year
  Sex: Male

DRUGS (12)
  1. PREDNISONE [Suspect]
     Active Substance: PREDNISONE
     Indication: Chronic granulomatous disease
     Dosage: UNK
     Route: 042
  2. PREDNISONE [Suspect]
     Active Substance: PREDNISONE
     Indication: Colitis
  3. METRONIDAZOLE [Suspect]
     Active Substance: METRONIDAZOLE
     Indication: Chronic granulomatous disease
     Dosage: UNK
     Route: 065
  4. METRONIDAZOLE [Suspect]
     Active Substance: METRONIDAZOLE
     Indication: Colitis
  5. MESALAMINE [Concomitant]
     Active Substance: MESALAMINE
     Indication: Chronic granulomatous disease
     Dosage: UNK
     Route: 065
  6. MESALAMINE [Concomitant]
     Active Substance: MESALAMINE
     Indication: Colitis
  7. AMOXICILLIN [Concomitant]
     Active Substance: AMOXICILLIN
     Indication: Chronic granulomatous disease
     Dosage: UNK
     Route: 065
  8. AMOXICILLIN [Concomitant]
     Active Substance: AMOXICILLIN
     Indication: Colitis
  9. DOXYCYCLINE [Concomitant]
     Active Substance: DOXYCYCLINE
     Indication: Chronic granulomatous disease
     Dosage: UNK
     Route: 065
  10. DOXYCYCLINE [Concomitant]
     Active Substance: DOXYCYCLINE
     Indication: Colitis
  11. VANCOMYCIN [Concomitant]
     Active Substance: VANCOMYCIN
     Indication: Chronic granulomatous disease
     Dosage: UNK
     Route: 065
  12. VANCOMYCIN [Concomitant]
     Active Substance: VANCOMYCIN
     Indication: Colitis

REACTIONS (4)
  - Neurotoxicity [Recovered/Resolved]
  - Colitis [Unknown]
  - Toxicity to various agents [Recovered/Resolved]
  - Off label use [Unknown]
